FAERS Safety Report 5341287-0 (Version None)
Quarter: 2007Q2

REPORT INFORMATION
  Report Type: 
  Country: None (occurrence: None)
  Receive Date: 20070530
  Receipt Date: 20070514
  Transmission Date: 20071010
  Serious: Yes (Hospitalization, Other)
  Sender: FDA-Public Use
  Company Number: 07-001082

PATIENT
  Age: 67 Year
  Sex: Female
  Weight: 74.8 kg

DRUGS (4)
  1. ESTRACE [Suspect]
     Indication: VULVOVAGINAL DRYNESS
     Dosage: 1-1.5GM, 3 TIMES/WEEK, VAGINAL
     Route: 067
     Dates: start: 19950101, end: 20070427
  2. SYNTHROID [Concomitant]
  3. ALLEGRA /01314201/ (FEXOFENADINE) [Concomitant]
  4. INDERAL /00030001/ (PROPRANOLOL) [Concomitant]

REACTIONS (3)
  - COLON CANCER [None]
  - SMALL INTESTINE CARCINOMA METASTATIC [None]
  - SMALL INTESTINE CARCINOMA STAGE IV [None]
